FAERS Safety Report 22364567 (Version 1)
Quarter: 2023Q2

REPORT INFORMATION
  Report Type: Spontaneous
  Country: None (occurrence: SA)
  Receive Date: 20230525
  Receipt Date: 20230525
  Transmission Date: 20230721
  Serious: Yes (Hospitalization)
  Sender: FDA-Public Use
  Company Number: SA-Therakind Limited-2141975

PATIENT
  Age: 69 Year
  Sex: Female

DRUGS (2)
  1. METHOTREXATE [Suspect]
     Active Substance: METHOTREXATE
     Indication: Rheumatoid arthritis
     Route: 048
  2. TOFACITINIB [Suspect]
     Active Substance: TOFACITINIB

REACTIONS (5)
  - Herpes virus infection [Recovered/Resolved]
  - Herpes dermatitis [Recovered/Resolved]
  - Status epilepticus [Recovered/Resolved]
  - Meningitis bacterial [Recovered/Resolved]
  - Dysphagia [Recovered/Resolved]
